FAERS Safety Report 4902737-4 (Version None)
Quarter: 2006Q1

REPORT INFORMATION
  Report Type: 
  Country: None (occurrence: None)
  Receive Date: 20060207
  Receipt Date: 20060130
  Transmission Date: 20060701
  Serious: Yes (Other)
  Sender: FDA-Public Use
  Company Number: US-KINGPHARMUSA00001-K200600115

PATIENT
  Age: 65 Year
  Sex: Male

DRUGS (3)
  1. ALTACE [Suspect]
     Indication: HYPERTENSION
     Route: 048
  2. DIAPREL [Suspect]
     Indication: DIABETES MELLITUS
     Route: 048
  3. MELAGATRAN [Suspect]
     Indication: PROPHYLAXIS
     Dates: start: 20060108, end: 20060109

REACTIONS (3)
  - ABDOMINAL PAIN [None]
  - GASTRIC ULCER PERFORATION [None]
  - VOMITING [None]
